FAERS Safety Report 23642345 (Version 1)
Quarter: 2024Q1

REPORT INFORMATION
  Report Type: Spontaneous
  Country: PL (occurrence: PL)
  Receive Date: 20240318
  Receipt Date: 20240318
  Transmission Date: 20240409
  Serious: Yes (Hospitalization)
  Sender: FDA-Public Use
  Company Number: PL-ROCHE-3508593

PATIENT
  Age: 64 Year
  Sex: Female
  Weight: 56 kg

DRUGS (23)
  1. CYCLOPHOSPHAMIDE [Suspect]
     Active Substance: CYCLOPHOSPHAMIDE
     Indication: Diffuse large B-cell lymphoma
     Dosage: 750 MG/M2, TIW,ON 24/JAN/2024 SHE RECEIVED MOST RECENT DOSE OF STUDY DRUG (750 MG/M2) PRIOR TO AE/SA
     Route: 042
     Dates: start: 20231211
  2. DOXORUBICIN [Suspect]
     Active Substance: DOXORUBICIN
     Indication: Diffuse large B-cell lymphoma
     Dosage: 50 MG/M2, TIW, ON 24/JAN/2024 SHE RECEIVED MOST RECENT DOSE OF STUDY DRUG (50 MG/M2) PRIOR TO AE/SAE
     Route: 042
     Dates: start: 20231211
  3. GLOFITAMAB [Suspect]
     Active Substance: GLOFITAMAB
     Indication: Diffuse large B-cell lymphoma
     Dosage: ON 07/FEB/2024 SHE RECEIVED MOST RECENT DOSE OF STUDY DRUG (10 MG) PRIOR TO AE/SAE.
     Route: 042
     Dates: start: 20240131
  4. PREDNISONE [Suspect]
     Active Substance: PREDNISONE
     Indication: Diffuse large B-cell lymphoma
     Dosage: 100 MG, TIW, ON 24/JAN/2024 SHE RECEIVED MOST RECENT DOSE OF STUDY DRUG (100 MG) PRIOR TO AE/SAE.
     Route: 048
     Dates: start: 20231211
  5. RITUXIMAB [Suspect]
     Active Substance: RITUXIMAB
     Indication: Product used for unknown indication
     Dosage: 375 MG/M2, TIW, ON 24/JAN/2024 SHE RECEIVED MOST RECENT DOSE OF STUDY DRUG (375 MG/M2) PRIOR TO AE/S
     Route: 042
     Dates: start: 20231211
  6. VINCRISTINE [Suspect]
     Active Substance: VINCRISTINE
     Indication: Pyrexia
     Dosage: ON 24/JAN/2024 SHE RECEIVED MOST RECENT DOSE OF STUDY DRUG (2 MG) PRIOR TO AE/SAE.
     Route: 042
     Dates: start: 20231211
  7. FILGRASTIM [Concomitant]
     Active Substance: FILGRASTIM
     Indication: Product used for unknown indication
     Dosage: QD
     Route: 065
     Dates: start: 20240104, end: 20240109
  8. ALLOPURINOL [Concomitant]
     Active Substance: ALLOPURINOL
     Indication: Product used for unknown indication
     Dosage: 100.000MG
     Route: 065
     Dates: start: 20231211, end: 20240124
  9. BISEPTOL [Concomitant]
     Active Substance: SULFAMETHOXAZOLE\TRIMETHOPRIM
     Indication: Product used for unknown indication
     Dosage: 960 MG
     Route: 065
     Dates: start: 20231211
  10. DEXAMETHASONE [Concomitant]
     Active Substance: DEXAMETHASONE
     Indication: Product used for unknown indication
     Dosage: 20 MG
     Route: 065
     Dates: start: 20240207, end: 20240207
  11. DEXAMETHASONE [Concomitant]
     Active Substance: DEXAMETHASONE
     Dosage: 20 MG
     Route: 065
     Dates: start: 20240124, end: 20240124
  12. DEXAMETHASONE [Concomitant]
     Active Substance: DEXAMETHASONE
     Dosage: 20 MG
     Route: 065
     Dates: start: 20240130, end: 20240130
  13. PROMETHAZINE HYDROCHLORIDE [Concomitant]
     Active Substance: PROMETHAZINE HYDROCHLORIDE
     Indication: Product used for unknown indication
     Dosage: 50 MG
     Route: 065
     Dates: start: 20240207, end: 20240207
  14. PROMETHAZINE HYDROCHLORIDE [Concomitant]
     Active Substance: PROMETHAZINE HYDROCHLORIDE
     Dosage: 50 MG
     Route: 065
     Dates: start: 20240131, end: 20240131
  15. FASTURTEC [Concomitant]
     Active Substance: RASBURICASE
     Indication: Product used for unknown indication
     Dosage: UNK
     Route: 065
     Dates: start: 20240124, end: 20240124
  16. GRANULOCYTE COLONY-STIMULATING FACTOR NOS [Concomitant]
     Active Substance: GRANULOCYTE COLONY-STIMULATING FACTOR NOS
     Indication: Product used for unknown indication
     Dosage: QD
     Route: 065
     Dates: start: 20240125, end: 20240129
  17. GRANULOCYTE COLONY-STIMULATING FACTOR NOS [Concomitant]
     Active Substance: GRANULOCYTE COLONY-STIMULATING FACTOR NOS
     Dosage: QD
     Route: 065
     Dates: start: 20240125, end: 20240129
  18. ACYCLOVIR [Concomitant]
     Active Substance: ACYCLOVIR
     Indication: Product used for unknown indication
     Dosage: 400 MG
     Route: 065
     Dates: start: 20231211
  19. ONDANSETRON [Concomitant]
     Active Substance: ONDANSETRON
     Indication: Product used for unknown indication
     Dosage: UNK
     Route: 065
  20. ACETAMINOPHEN [Concomitant]
     Active Substance: ACETAMINOPHEN
     Dosage: 1 G
     Route: 065
     Dates: start: 20240206, end: 20240206
  21. ACETAMINOPHEN [Concomitant]
     Active Substance: ACETAMINOPHEN
     Indication: Pyrexia
     Dosage: 1000 MG
     Route: 065
     Dates: start: 20240131, end: 20240131
  22. ACETAMINOPHEN [Concomitant]
     Active Substance: ACETAMINOPHEN
     Dosage: 1000 MG
     Route: 065
     Dates: start: 20240207, end: 20240207
  23. PIPERACILLIN SODIUM\TAZOBACTAM SODIUM [Concomitant]
     Active Substance: PIPERACILLIN SODIUM\TAZOBACTAM SODIUM
     Indication: Infection
     Dosage: 4.5 G
     Route: 065
     Dates: start: 20240207, end: 20240207

REACTIONS (1)
  - Cytokine release syndrome [Not Recovered/Not Resolved]

NARRATIVE: CASE EVENT DATE: 20240208
